FAERS Safety Report 8159144-3 (Version None)
Quarter: 2012Q1

REPORT INFORMATION
  Report Type: 
  Country: None (occurrence: None)
  Receive Date: 20120103
  Receipt Date: 20111101
  Transmission Date: 20120608
  Serious: No
  Sender: FDA-Public Use
  Company Number: AE-2011-002957

PATIENT
  Age: 55 Year
  Sex: Male
  Weight: 53.5244 kg

DRUGS (4)
  1. PEGINTERFERON (PEGINTERFERON ALFA-2A) [Concomitant]
  2. OXYCODONE HCL [Concomitant]
  3. RIBAVIRIN [Concomitant]
  4. INCIVEK [Suspect]
     Dosage: 6 DOSAGE FORMS ( 2 DOSAGES FORMS, 1 IN 8 HR),ORAL
     Route: 048
     Dates: start: 20110812, end: 20111030

REACTIONS (6)
  - OESOPHAGEAL PAIN [None]
  - DECREASED APPETITE [None]
  - FEELING ABNORMAL [None]
  - HYPERHIDROSIS [None]
  - SLEEP DISORDER [None]
  - WEIGHT DECREASED [None]
